FAERS Safety Report 16905371 (Version 1)
Quarter: 2019Q4

REPORT INFORMATION
  Report Type: Spontaneous
  Country: US (occurrence: US)
  Receive Date: 20191010
  Receipt Date: 20191010
  Transmission Date: 20200122
  Serious: Yes (Other)
  Sender: FDA-Public Use
  Company Number: US-SA-2019SA277346

PATIENT
  Age: 65 Year
  Sex: Female

DRUGS (2)
  1. LONSURF [Suspect]
     Active Substance: TIPIRACIL HYDROCHLORIDE\TRIFLURIDINE
  2. LOVENOX [Suspect]
     Active Substance: ENOXAPARIN SODIUM
     Dosage: UNK UNK, UNK
     Route: 065

REACTIONS (5)
  - Blood urine present [Unknown]
  - Fatigue [Unknown]
  - Vaginal haemorrhage [Unknown]
  - Cystitis [Unknown]
  - Haemoglobin decreased [Unknown]
